FAERS Safety Report 9316529 (Version 1)
Quarter: 2013Q2

REPORT INFORMATION
  Report Type: Spontaneous
  Country: US (occurrence: US)
  Receive Date: 20130530
  Receipt Date: 20130530
  Transmission Date: 20140414
  Serious: No
  Sender: FDA-Public Use
  Company Number: US-PFIZER INC-2013141443

PATIENT
  Age: 81 Year
  Sex: Female
  Weight: 58 kg

DRUGS (3)
  1. CELEBREX [Suspect]
     Indication: OSTEOARTHRITIS
     Dosage: 200 MG, 2X/DAY
     Route: 048
     Dates: start: 20130426, end: 201305
  2. CELEBREX [Suspect]
     Indication: PAIN IN EXTREMITY
  3. ATACAND [Concomitant]
     Indication: HYPERTENSION
     Dosage: 8 MG, 1X/DAY

REACTIONS (4)
  - Drug dispensing error [Unknown]
  - Circumstance or information capable of leading to medication error [Unknown]
  - Product label issue [Unknown]
  - Drug ineffective [Unknown]
